FAERS Safety Report 17129580 (Version 3)
Quarter: 2022Q2

REPORT INFORMATION
  Report Type: Spontaneous
  Country: US (occurrence: US)
  Receive Date: 20191209
  Receipt Date: 20220422
  Transmission Date: 20220721
  Serious: Yes (Hospitalization)
  Sender: FDA-Public Use
  Company Number: US-PFIZER INC-2019530914

PATIENT
  Age: 63 Year
  Sex: Female
  Weight: 63.5 kg

DRUGS (32)
  1. LYRICA [Suspect]
     Active Substance: PREGABALIN
     Indication: Nerve compression
     Dosage: 50 MG, 1X/DAY (NIGHTLY)
     Route: 048
  2. LYRICA [Suspect]
     Active Substance: PREGABALIN
     Indication: Spinal stenosis
     Dosage: 50 MG, 2X/DAY
     Route: 048
  3. LYRICA [Suspect]
     Active Substance: PREGABALIN
     Indication: Fibromyalgia
     Dosage: 50 MG, 3X/DAY
     Route: 048
  4. LYRICA [Suspect]
     Active Substance: PREGABALIN
     Dosage: UNK
  5. PANTOPRAZOLE [Concomitant]
     Active Substance: PANTOPRAZOLE
     Dosage: UNK
  6. LORAZEPAM [Concomitant]
     Active Substance: LORAZEPAM
     Dosage: UNK
  7. HYDROCODONE [Concomitant]
     Active Substance: HYDROCODONE
     Dosage: UNK
  8. PREMARIN [Concomitant]
     Active Substance: ESTROGENS, CONJUGATED
     Dosage: 0.625 MG, 2X/DAY
     Route: 048
  9. ACETAMINOPHEN\CAFFEINE [Concomitant]
     Active Substance: ACETAMINOPHEN\CAFFEINE
     Dosage: UNK, AS NEEDED (TAKE BY MOUTH AS NEEDED)
     Route: 048
  10. DICYCLOMINE [Concomitant]
     Active Substance: DICYCLOMINE HYDROCHLORIDE
     Dosage: UNK
  11. SYNTHROID [Concomitant]
     Active Substance: LEVOTHYROXINE SODIUM
     Indication: Thyroid disorder
     Dosage: 50 UG, 1X/DAY (TAKE ONE TABLET BY MOUTH EVERY MORNING ON EMPTY STOMACH)
     Route: 048
  12. BACLOFEN [Concomitant]
     Active Substance: BACLOFEN
     Dosage: UNK
  13. GABAPENTIN [Concomitant]
     Active Substance: GABAPENTIN
     Dosage: UNK
  14. METOPROLOL [Concomitant]
     Active Substance: METOPROLOL
     Dosage: UNK
  15. AMLODIPINE [Concomitant]
     Active Substance: AMLODIPINE BESYLATE
     Dosage: UNK
  16. LIDOCAINE [Concomitant]
     Active Substance: LIDOCAINE
     Dosage: UNK, DAILY (APPLY 3 PATCHES TOPICALLY DAILY. APPLY THREE PATCHES EXTERNALLY DAILY TOO PAINFUL AREAS)
     Route: 061
  17. CYCLOSPORINE [Concomitant]
     Active Substance: CYCLOSPORINE
     Dosage: UNK
  18. QUESTRAN [Concomitant]
     Active Substance: CHOLESTYRAMINE
     Dosage: UNK, DAILY(4 GRAM; TAKE 1 PACKET BY MOUTH DAILY FOR 90 DAYS)
     Route: 048
  19. TOPROL XL [Concomitant]
     Active Substance: METOPROLOL SUCCINATE
     Indication: Hypertension
     Dosage: 25 MG, 2X/DAY (SWALLOW WHOLE)
     Route: 048
     Dates: start: 2015
  20. NEURONTIN [Concomitant]
     Active Substance: GABAPENTIN
     Dosage: 1200 MG, 1X/DAY (TAKE 3 CAPSULES BY MOUTH EVERY EVENING)
     Route: 048
  21. ATIVAN [Concomitant]
     Active Substance: LORAZEPAM
     Dosage: 2 MG, 3X/DAY (TRY TO REDUCE NUMBER OF PILLS TAKEN PER DAY TO 0-1 DAY)
     Route: 048
  22. NORCO [Concomitant]
     Active Substance: ACETAMINOPHEN\HYDROCODONE BITARTRATE
     Indication: Pain
     Dosage: 1 DF, AS NEEDED (TAKE 1 TABLET BY MOUTH EVERY 4 TO 6 HOURS AS NEEDED FOR PAIN)
     Route: 048
  23. BENTYL [Concomitant]
     Active Substance: DICYCLOMINE HYDROCHLORIDE
     Dosage: 20 MG, 4X/DAY (TAKE 2 CAPSULES BY MOUTH FOUR TIMES DAILY)
  24. LIORESAL [Concomitant]
     Active Substance: BACLOFEN
     Dosage: 10 MG
     Route: 048
  25. VITAMIN B12 [Concomitant]
     Active Substance: CYANOCOBALAMIN
     Dosage: UNK(TAKE BY MOUTH)
     Route: 048
  26. CELEBREX [Concomitant]
     Active Substance: CELECOXIB
     Dosage: 200 MG, 2X/DAY
     Route: 048
  27. NORVASC [Concomitant]
     Active Substance: AMLODIPINE BESYLATE
     Dosage: 10 MG, 1X/DAY (TAKE 10 MG BY MOUTH DAILY. TAKE THIS MEDICATION AROUND 11 AM)
     Route: 048
  28. CALCIUM\CHOLECALCIFEROL [Concomitant]
     Active Substance: CALCIUM\CHOLECALCIFEROL
     Dosage: 1 DF, DAILY
     Route: 048
  29. PROTONIX [Concomitant]
     Active Substance: PANTOPRAZOLE SODIUM
     Dosage: 40 MG, 2X/DAY(TAKE 40 MG BY MOUTH TWO TIMES DAILY (BEFORE BREAKFAST AND DINNER), SWALLOW WHOLE)
     Route: 048
  30. FLEXERIL [Concomitant]
     Active Substance: CYCLOBENZAPRINE HYDROCHLORIDE
     Dosage: UNK, AS NEEDED(0.5-1 TABLETS NIGHTLY. PATIENT TAKING DIFFERENTIALLY; TAKE 5-10 MG NIGHTLY AS NEED)
     Route: 048
  31. SUDAFED [Concomitant]
     Active Substance: PSEUDOEPHEDRINE HYDROCHLORIDE
     Dosage: UNK, DAILY
     Route: 048
  32. TRAZODONE [Concomitant]
     Active Substance: TRAZODONE HYDROCHLORIDE
     Indication: Nervous system disorder
     Dosage: 75 MG, 1X/DAY (1 AND HALF TABLETS, NIGHTLY)
     Dates: start: 2021

REACTIONS (4)
  - Seizure [Recovered/Resolved]
  - Syncope [Recovered/Resolved]
  - Illness [Unknown]
  - Circumstance or information capable of leading to medication error [Unknown]

NARRATIVE: CASE EVENT DATE: 20210501
